FAERS Safety Report 10420977 (Version 1)
Quarter: 2014Q3

REPORT INFORMATION
  Report Type: Spontaneous
  Country: DE (occurrence: None)
  Receive Date: 20140828
  Receipt Date: 20140828
  Transmission Date: 20150326
  Serious: Yes (Death, Life-Threatening)
  Sender: FDA-Public Use
  Company Number: FK201403364

PATIENT
  Age: 51 Year
  Sex: Female

DRUGS (4)
  1. GENTAMICIN (MANUFACTURER UNKNOWN) (GENTAMICIN) (GENTAMICIN) [Suspect]
     Active Substance: GENTAMICIN
     Indication: PATHOGEN RESISTANCE
     Dosage: ORAL OR THROUGH A NASOGASTRIC TUBE
     Dates: start: 20120608
  2. COLISTIMETHATE [Suspect]
     Active Substance: COLISTIMETHATE SODIUM
     Indication: PATHOGEN RESISTANCE
     Route: 042
  3. COLISTIN SULFATE [Suspect]
     Active Substance: COLISTIN SULFATE
     Indication: PATHOGEN RESISTANCE
     Dosage: ORAL OR THROUGH A NASOGASTRIC TUBE
     Dates: start: 20120608
  4. TIGECYCLINE [Suspect]
     Active Substance: TIGECYCLINE
     Indication: PATHOGEN RESISTANCE
     Route: 042

REACTIONS (2)
  - Multi-organ failure [None]
  - Pathogen resistance [None]
